FAERS Safety Report 17659183 (Version 1)
Quarter: 2020Q2

REPORT INFORMATION
  Report Type: Spontaneous
  Country: SE (occurrence: SE)
  Receive Date: 20200413
  Receipt Date: 20200413
  Transmission Date: 20200713
  Serious: Yes (Life-Threatening, Hospitalization, Other)
  Sender: FDA-Public Use
  Company Number: SE-AUROBINDO-AUR-APL-2020-017291

PATIENT
  Age: 81 Year
  Sex: Male

DRUGS (3)
  1. DIAZEPAM. [Suspect]
     Active Substance: DIAZEPAM
     Indication: PRODUCT USED FOR UNKNOWN INDICATION
     Dosage: UNK
     Route: 065
  2. INSULIN [Suspect]
     Active Substance: INSULIN NOS
     Indication: CARDIAC DYSFUNCTION
     Dosage: LOADING DOSE OF 1 U/KG FOLLOWED BY INFUSION AT 1 U/KG/H, 5 U/KG/H AND THEN 10 U/KG/H
     Route: 065
  3. AMLODIPINE [Suspect]
     Active Substance: AMLODIPINE BESYLATE
     Indication: PRODUCT USED FOR UNKNOWN INDICATION
     Dosage: AT A DOSE OF 0.5-1G
     Route: 048

REACTIONS (2)
  - Myocardial depression [Unknown]
  - Haemodynamic instability [Unknown]
